FAERS Safety Report 9363592 (Version 1)
Quarter: 2013Q2

REPORT INFORMATION
  Report Type: Spontaneous
  Country: GB (occurrence: GB)
  Receive Date: 20130624
  Receipt Date: 20130624
  Transmission Date: 20140414
  Serious: Yes (Other)
  Sender: FDA-Public Use
  Company Number: PHFR2013GB003593

PATIENT
  Sex: Male

DRUGS (3)
  1. DIOVAN [Suspect]
     Indication: HYPERTENSION
     Dosage: 80 MG, QD
  2. DIOVAN [Suspect]
     Dosage: 80 MG QD AND 40MG BID
  3. DIOVAN [Suspect]
     Dosage: 160 MG, QD

REACTIONS (2)
  - Myocardial infarction [Unknown]
  - Wrong technique in drug usage process [Unknown]
